FAERS Safety Report 26077567 (Version 1)
Quarter: 2025Q4

REPORT INFORMATION
  Report Type: Spontaneous
  Country: US (occurrence: US)
  Receive Date: 20251121
  Receipt Date: 20251121
  Transmission Date: 20260117
  Serious: No
  Sender: NOVO NORDISK
  Company Number: US-NOVOPROD-1524032

PATIENT
  Age: 66 Year
  Sex: Female

DRUGS (1)
  1. TRESIBA [Suspect]
     Active Substance: INSULIN DEGLUDEC
     Indication: Type 1 diabetes mellitus
     Dosage: 2 IU, QD
     Route: 058
     Dates: start: 2023

REACTIONS (3)
  - Food allergy [Unknown]
  - Blood glucose increased [Unknown]
  - Product dispensing error [Unknown]
